FAERS Safety Report 9245158 (Version 2)
Quarter: 2013Q2

REPORT INFORMATION
  Report Type: Spontaneous
  Country: US (occurrence: US)
  Receive Date: 20130422
  Receipt Date: 20130530
  Transmission Date: 20140414
  Serious: Yes (Disabling)
  Sender: FDA-Public Use
  Company Number: US-009507513-1304USA010045

PATIENT
  Age: 32 Year
  Sex: Female

DRUGS (3)
  1. SAPHRIS [Suspect]
     Indication: BIPOLAR I DISORDER
     Dosage: 5 MG, BID
     Route: 060
     Dates: start: 201304
  2. SAPHRIS [Suspect]
     Dosage: 5 MG, QD
     Route: 060
  3. SEROQUEL XR [Concomitant]

REACTIONS (1)
  - Sedation [Recovering/Resolving]
